FAERS Safety Report 4829351-3 (Version None)
Quarter: 2005Q4

REPORT INFORMATION
  Report Type: 
  Country: None (occurrence: None)
  Receive Date: 20051116
  Receipt Date: 20051110
  Transmission Date: 20060501
  Serious: Yes (Hospitalization)
  Sender: FDA-Public Use
  Company Number: 2005SE06489

PATIENT
  Age: 58 Year
  Sex: Male

DRUGS (2)
  1. BLOPRESS [Suspect]
     Indication: HYPERTENSION
     Route: 048
     Dates: start: 20030101, end: 20051007
  2. NORVASC [Concomitant]
     Route: 048

REACTIONS (1)
  - RHABDOMYOLYSIS [None]
